FAERS Safety Report 12932914 (Version 1)
Quarter: 2016Q4

REPORT INFORMATION
  Report Type: Spontaneous
  Country: DE (occurrence: DE)
  Receive Date: 20161111
  Receipt Date: 20161111
  Transmission Date: 20170207
  Serious: Yes (Other)
  Sender: FDA-Public Use
  Company Number: DE-SUN PHARMACEUTICAL INDUSTRIES LTD-2016R1-127310

PATIENT
  Age: 13 Year
  Sex: Male

DRUGS (23)
  1. CYCLOPHOSPHAMIDE. [Suspect]
     Active Substance: CYCLOPHOSPHAMIDE
     Dosage: 5 * 200 MG/M2
     Route: 037
  2. VINCRISTINE [Suspect]
     Active Substance: VINCRISTINE
     Indication: NON-HODGKIN^S LYMPHOMA
     Dosage: 1 * 0.75 MG/M2
     Route: 037
  3. CYCLOPHOSPHAMIDE. [Suspect]
     Active Substance: CYCLOPHOSPHAMIDE
     Dosage: 5 * 200 MG/M2
     Route: 037
  4. DOXORUBICIN [Suspect]
     Active Substance: DOXORUBICIN
     Indication: NON-HODGKIN^S LYMPHOMA
     Dosage: 2 * 16.5 MG/M2
     Route: 037
  5. DOXORUBICIN [Suspect]
     Active Substance: DOXORUBICIN
     Dosage: 2 * 25 MG/M2
     Route: 037
  6. VINCRISTINE [Suspect]
     Active Substance: VINCRISTINE
     Dosage: 1 * 1.5 MG/M2
     Route: 037
  7. CYTARABINE. [Suspect]
     Active Substance: CYTARABINE
     Dosage: 4 * 150 MG/M2
     Route: 037
  8. CYTARABINE. [Suspect]
     Active Substance: CYTARABINE
     Dosage: 4 * 150 MG/M2
     Route: 037
  9. VINCRISTINE [Suspect]
     Active Substance: VINCRISTINE
     Dosage: 1 * 1.5 MG/M2
     Route: 037
  10. CYCLOPHOSPHAMIDE. [Suspect]
     Active Substance: CYCLOPHOSPHAMIDE
     Indication: NON-HODGKIN^S LYMPHOMA
     Dosage: 5 * 100 MG/M2
     Route: 037
  11. METHOTREXATE. [Suspect]
     Active Substance: METHOTREXATE
     Dosage: 1 * 1000 MG/M2
     Route: 037
  12. VINCRISTINE [Suspect]
     Active Substance: VINCRISTINE
     Dosage: 1 * 1.5 MG/M2
     Route: 037
  13. DEXAMETHASONE. [Suspect]
     Active Substance: DEXAMETHASONE
     Dosage: 5 * 10 MG/M2
     Route: 037
  14. DEXAMETHASONE. [Suspect]
     Active Substance: DEXAMETHASONE
     Dosage: 5 * 10 MG/M2
     Route: 037
  15. DEXAMETHASONE. [Suspect]
     Active Substance: DEXAMETHASONE
     Dosage: 5 * 10 MG/M2
     Route: 037
  16. CYCLOPHOSPHAMIDE. [Suspect]
     Active Substance: CYCLOPHOSPHAMIDE
     Dosage: 5 * 200 MG/M2
     Route: 037
  17. METHOTREXATE. [Suspect]
     Active Substance: METHOTREXATE
     Dosage: 1 * 1000 MG/M2
     Route: 037
  18. DEXAMETHASONE. [Suspect]
     Active Substance: DEXAMETHASONE
     Indication: NON-HODGKIN^S LYMPHOMA
     Dosage: 5 * 10 MG/M2
     Route: 037
  19. ETOPOSIDE. [Suspect]
     Active Substance: ETOPOSIDE
     Indication: NON-HODGKIN^S LYMPHOMA
     Dosage: 2 * 100 MG/M2
     Route: 037
  20. METHOTREXATE. [Suspect]
     Active Substance: METHOTREXATE
     Dosage: 1 * 1000 MG/M2
     Route: 037
  21. CYTARABINE. [Suspect]
     Active Substance: CYTARABINE
     Dosage: 4 * 150 MG/M2
     Route: 037
  22. METHOTREXATE. [Suspect]
     Active Substance: METHOTREXATE
     Indication: NON-HODGKIN^S LYMPHOMA
     Dosage: 1 * 500 MG/M2
     Route: 037
  23. CYTARABINE. [Suspect]
     Active Substance: CYTARABINE
     Indication: NON-HODGKIN^S LYMPHOMA
     Dosage: 4 * 75 MG/M2
     Route: 037

REACTIONS (3)
  - Hepatotoxicity [Unknown]
  - Haematuria [Recovered/Resolved]
  - Haematotoxicity [Unknown]
